FAERS Safety Report 4310236-6 (Version None)
Quarter: 2004Q1

REPORT INFORMATION
  Report Type: 
  Country: None (occurrence: None)
  Receive Date: 20040301
  Receipt Date: 20031219
  Transmission Date: 20041129
  Serious: No
  Sender: FDA-Public Use
  Company Number: WAES 0312USA02206

PATIENT
  Age: 68 Year
  Sex: Male

DRUGS (3)
  1. ZETIA [Suspect]
     Indication: HYPERCHOLESTEROLAEMIA
     Dosage: 10MG/DAILY/PO
     Dates: start: 20031205
  2. NORVASC [Concomitant]
  3. PROSCAR [Concomitant]

REACTIONS (1)
  - CONSTIPATION [None]
